FAERS Safety Report 5464089-3 (Version None)
Quarter: 2007Q3

REPORT INFORMATION
  Report Type: 
  Country: None (occurrence: None)
  Receive Date: 20070921
  Receipt Date: 20070912
  Transmission Date: 20080115
  Serious: Yes (Other)
  Sender: FDA-Public Use
  Company Number: US-ROCHE-517417

PATIENT
  Age: 57 Year
  Sex: Male

DRUGS (2)
  1. PEG-INTERFERON A-2A (RO 25-8310) [Suspect]
     Dosage: REPORTED AS PEGASYS
     Route: 065
     Dates: start: 20061107
  2. RIBAVIRIN [Suspect]
     Dosage: REPORTED AS COPEGUS
     Route: 065
     Dates: start: 20061107

REACTIONS (1)
  - PULMONARY FIBROSIS [None]
